FAERS Safety Report 19019906 (Version 1)
Quarter: 2021Q1

REPORT INFORMATION
  Report Type: Spontaneous
  Country: US (occurrence: US)
  Receive Date: 20210317
  Receipt Date: 20210317
  Transmission Date: 20210420
  Serious: Yes (Life-Threatening, Hospitalization, Disabling)
  Sender: FDA-Public Use
  Company Number: None

PATIENT
  Age: 76 Year
  Sex: Male
  Weight: 86.31 kg

DRUGS (6)
  1. OXALIPLATIN. [Suspect]
     Active Substance: OXALIPLATIN
     Indication: ADENOCARCINOMA
     Dosage: ?          OTHER FREQUENCY:DAYS 1 AND 15;?
     Route: 042
     Dates: start: 20200924, end: 20201231
  2. LEUCOVORIN CALCIUM. [Concomitant]
     Active Substance: LEUCOVORIN CALCIUM
     Dates: start: 20200924, end: 20201231
  3. OXALIPLATIN. [Suspect]
     Active Substance: OXALIPLATIN
     Indication: ADENOCARCINOMA
     Dosage: ?          OTHER FREQUENCY:DAY 1 AND 15;?
     Route: 042
     Dates: start: 20200924, end: 20201231
  4. OXALIPLATIN. [Suspect]
     Active Substance: OXALIPLATIN
     Indication: COLON CANCER STAGE III
     Dosage: ?          OTHER FREQUENCY:DAYS 1 AND 15;?
     Route: 042
     Dates: start: 20200924, end: 20201231
  5. FLUOROURACIL. [Concomitant]
     Active Substance: FLUOROURACIL
     Dates: start: 20200924, end: 20201231
  6. OXALIPLATIN. [Suspect]
     Active Substance: OXALIPLATIN
     Indication: COLON CANCER STAGE III
     Dosage: ?          OTHER FREQUENCY:DAY 1 AND 15;?
     Route: 042
     Dates: start: 20200924, end: 20201231

REACTIONS (11)
  - Interstitial lung disease [None]
  - Pyrexia [None]
  - Cough [None]
  - Dyspnoea exertional [None]
  - Pulmonary oedema [None]
  - Lung opacity [None]
  - Computerised tomogram abnormal [None]
  - Pulmonary mass [None]
  - Haemoptysis [None]
  - Tachypnoea [None]
  - Condition aggravated [None]

NARRATIVE: CASE EVENT DATE: 20210105
